FAERS Safety Report 6013592-6 (Version None)
Quarter: 2008Q4

REPORT INFORMATION
  Report Type: 
  Country: None (occurrence: None)
  Receive Date: 20081219
  Receipt Date: 20081210
  Transmission Date: 20090506
  Serious: No
  Sender: FDA-Public Use
  Company Number: US-JNJFOC-20081203251

PATIENT
  Age: 26 Year
  Sex: Male

DRUGS (2)
  1. INVEGA [Suspect]
     Route: 048
  2. INVEGA [Suspect]
     Indication: SCHIZOPHRENIA
     Dosage: 6-9 MG
     Route: 048

REACTIONS (3)
  - AGGRESSION [None]
  - BLOOD PROLACTIN INCREASED [None]
  - NIGHT SWEATS [None]
